FAERS Safety Report 6337719-1 (Version None)
Quarter: 2009Q3

REPORT INFORMATION
  Report Type: 
  Country: None (occurrence: None)
  Receive Date: 20090902
  Receipt Date: 20090824
  Transmission Date: 20100115
  Serious: Yes (Other)
  Sender: FDA-Public Use
  Company Number: US-JNJFOC-20090807551

PATIENT
  Sex: Female
  Weight: 99.79 kg

DRUGS (10)
  1. REMICADE [Suspect]
     Route: 042
  2. REMICADE [Suspect]
     Route: 042
  3. REMICADE [Suspect]
     Indication: RHEUMATOID ARTHRITIS
     Dosage: ON THERAPY ^3-5 YEARS^
     Route: 042
  4. PREDNISONE [Concomitant]
     Route: 048
  5. PRILOSEC [Concomitant]
  6. METHOTREXATE [Concomitant]
  7. ALENDRONATE SODIUM [Concomitant]
  8. ALL OTHER THERAPEUTIC AGENTS [Concomitant]
     Indication: APTYALISM
  9. TYLENOL (CAPLET) [Concomitant]
     Indication: PREMEDICATION
  10. ANTIHISTAMINE [Concomitant]
     Indication: PREMEDICATION
     Route: 048

REACTIONS (10)
  - ANGIOEDEMA [None]
  - CHILLS [None]
  - CONTUSION [None]
  - DYSGEUSIA [None]
  - FALL [None]
  - FEELING HOT [None]
  - INFUSION RELATED REACTION [None]
  - ORAL PAIN [None]
  - PRURITUS [None]
  - RASH [None]
